FAERS Safety Report 5500906-6 (Version None)
Quarter: 2007Q4

REPORT INFORMATION
  Report Type: 
  Country: None (occurrence: None)
  Receive Date: 20071029
  Receipt Date: 20071024
  Transmission Date: 20080405
  Serious: Yes (Hospitalization)
  Sender: FDA-Public Use
  Company Number: US-BRISTOL-MYERS SQUIBB COMPANY-13955133

PATIENT
  Age: 76 Year
  Sex: Male
  Weight: 102 kg

DRUGS (19)
  1. CARBOPLATIN [Suspect]
     Indication: NON-SMALL CELL LUNG CANCER
     Dosage: FIRST COURSE WAS ON 06-JAN-2007 - 610 MG.
     Route: 042
     Dates: start: 20070206, end: 20070206
  2. PEMETREXED DISODIUM [Suspect]
     Indication: NON-SMALL CELL LUNG CANCER
     Dosage: FIRST COURSE WAS ON 16-JAN-2007.
     Route: 042
     Dates: start: 20070206, end: 20070206
  3. RADIATION THERAPY [Suspect]
     Indication: NON-SMALL CELL LUNG CANCER
     Dosage: DOSAGE FORM INDICATES CGY.
     Dates: end: 20070206
  4. IPRATROPIUM + ALBUTEROL [Concomitant]
     Dosage: ALBUTEROL 90/IPRATROP INHL
     Route: 055
  5. GUAIFENESIN + CODEINE [Concomitant]
     Dosage: CODEINE 10/GUAIFENESIN SYR S.F.
  6. CYANOCOBALAMINE [Concomitant]
  7. DEXAMETHASONE 0.5MG TAB [Concomitant]
  8. DOCUSATE SODIUM [Concomitant]
  9. FOLIC ACID [Concomitant]
  10. FORMOTEROL FUMARATE [Concomitant]
     Route: 055
  11. HYDROCHLOROTHIAZIDE [Concomitant]
  12. LISINOPRIL [Concomitant]
  13. MOMETASONE FUROATE [Concomitant]
     Route: 055
  14. OMEPRAZOLE [Concomitant]
  15. PAROXETINE HCL [Concomitant]
  16. PREDNISONE [Concomitant]
  17. PROCHLORPERAZINE MALEATE [Concomitant]
  18. SIMVASTATIN [Concomitant]
  19. VERAPAMIL HCL [Concomitant]

REACTIONS (1)
  - CHEST PAIN [None]
